FAERS Safety Report 7715188-4 (Version None)
Quarter: 2011Q3

REPORT INFORMATION
  Report Type: 
  Country: None (occurrence: None)
  Receive Date: 20110822
  Receipt Date: 20110805
  Transmission Date: 20111222
  Serious: Yes (Death, Other)
  Sender: FDA-Public Use
  Company Number: 2011MA011497

PATIENT
  Age: 21 Year
  Sex: Male

DRUGS (11)
  1. KETAMINE HCL [Suspect]
  2. MORPHINE [Suspect]
  3. SERTRALINE HYDROCHLORIDE [Suspect]
  4. TEMAZEPAM [Suspect]
  5. FLUOXETINE HYDROCHLORIDE [Suspect]
  6. 3,4-METHYLENEDIOXYMETHAMPHETAMINE (NO PREF. NAME) [Suspect]
  7. AMPHETAMINE SULFATE [Suspect]
  8. METHAMPHETAMINE HYDROCHLORIDE [Suspect]
  9. 6-MAM (NO PREF. NAME) [Suspect]
  10. DIAZEPAM [Suspect]
  11. CODEINE SULFATE [Suspect]

REACTIONS (4)
  - TOXICITY TO VARIOUS AGENTS [None]
  - PULMONARY OEDEMA [None]
  - SEROTONIN SYNDROME [None]
  - DRUG INTERACTION [None]
